FAERS Safety Report 9296025 (Version 1)
Quarter: 2013Q2

REPORT INFORMATION
  Report Type: Spontaneous
  Country: US (occurrence: US)
  Receive Date: 20130517
  Receipt Date: 20130517
  Transmission Date: 20140414
  Serious: Yes (Death, Other)
  Sender: FDA-Public Use
  Company Number: US-PFIZER INC-2013150137

PATIENT
  Age: 8 Decade
  Sex: Female

DRUGS (3)
  1. CELEBREX [Suspect]
     Dosage: UNK
  2. XARELTO [Suspect]
     Indication: THROMBOSIS PROPHYLAXIS
     Dosage: 10 MG, UNK
     Route: 048
     Dates: start: 201304, end: 2013
  3. XARELTO [Suspect]
     Indication: HIP ARTHROPLASTY

REACTIONS (4)
  - Death [Fatal]
  - Gastrointestinal haemorrhage [Unknown]
  - Condition aggravated [Unknown]
  - Creatinine renal clearance decreased [Unknown]
